FAERS Safety Report 4370873-X (Version None)
Quarter: 2004Q2

REPORT INFORMATION
  Report Type: 
  Country: None (occurrence: None)
  Receive Date: 20040601
  Receipt Date: 20040518
  Transmission Date: 20050107
  Serious: Yes (Hospitalization)
  Sender: FDA-Public Use
  Company Number: 2004GB01058

PATIENT
  Age: 64 Year
  Sex: Male
  Weight: 69 kg

DRUGS (8)
  1. IRESSA [Suspect]
     Indication: NON-SMALL CELL LUNG CANCER
     Dosage: 250 MG DAILY PO
     Route: 048
     Dates: start: 20031223, end: 20040413
  2. IRESSA [Suspect]
     Indication: NON-SMALL CELL LUNG CANCER
     Dosage: 250 MG DAILY, PO
     Dates: end: 20040514
  3. IRESSA [Suspect]
     Indication: NON-SMALL CELL LUNG CANCER
     Dosage: 250 MG DAILY PO
     Route: 048
     Dates: start: 20040515
  4. ORAMORPH SR [Concomitant]
  5. DICLOFENAC SODIUM [Concomitant]
  6. MORPHINE SULFATE [Concomitant]
  7. TRANEXAMIC [Concomitant]
  8. CO-DANTHRUSATE [Concomitant]

REACTIONS (6)
  - ABDOMINAL PAIN [None]
  - ABDOMINAL PAIN LOWER [None]
  - DRUG INEFFECTIVE [None]
  - DYSPNOEA [None]
  - PAIN EXACERBATED [None]
  - STENT OCCLUSION [None]
